FAERS Safety Report 9587305 (Version 1)
Quarter: 2013Q4

REPORT INFORMATION
  Report Type: Spontaneous
  Country: US (occurrence: None)
  Receive Date: 20131003
  Receipt Date: 20131003
  Transmission Date: 20140711
  Serious: Yes (Other)
  Sender: FDA-Public Use
  Company Number: None

PATIENT
  Age: 4 Year
  Sex: Female

DRUGS (1)
  1. SCOPE [Suspect]
     Dosage: 4 OUNCES
     Route: 048
     Dates: start: 20130919

REACTIONS (6)
  - Unresponsive to stimuli [None]
  - Abdominal pain upper [None]
  - Abasia [None]
  - Blood alcohol increased [None]
  - Accidental exposure to product by child [None]
  - Exposure via ingestion [None]
